FAERS Safety Report 10470435 (Version 1)
Quarter: 2014Q3

REPORT INFORMATION
  Report Type: Spontaneous
  Country: US (occurrence: None)
  Receive Date: 20140909
  Receipt Date: 20140909
  Transmission Date: 20150326
  Serious: Yes (Disabling)
  Sender: FDA-Public Use
  Company Number: 1389825

PATIENT
  Age: 82 Year
  Sex: Female

DRUGS (10)
  1. LUCENTIS [Suspect]
     Active Substance: RANIBIZUMAB
     Indication: AGE-RELATED MACULAR DEGENERATION
     Dosage: RIGHT EYE (0.5 MG, 1 IN 4 WK) , INVITREAL
     Dates: start: 20110517, end: 20120208
  2. SPIRONOLACTONE. [Concomitant]
     Active Substance: SPIRONOLACTONE
  3. VITAMIN B12 [Concomitant]
     Active Substance: CYANOCOBALAMIN
  4. AVASTIN [Suspect]
     Active Substance: BEVACIZUMAB
     Indication: AGE-RELATED MACULAR DEGENERATION
     Dosage: LEFT EYE (1 IN 4 WK) , INVITREAL
     Dates: start: 20090324, end: 20111208
  5. ENABLEX (DARIFENACIN HYDROBROMIDE) [Concomitant]
  6. LUTEIN [Concomitant]
     Active Substance: LUTEIN
  7. NASACORT NASAL SPRAY (TRIAMCINOLONE ACTEONIDE) [Concomitant]
  8. AMOXICILLIN. [Concomitant]
     Active Substance: AMOXICILLIN
  9. ACIPHEX (RABEPRAZOLE SODIUM) (TABLET) [Concomitant]
  10. FISH OIL [Concomitant]
     Active Substance: FISH OIL

REACTIONS (2)
  - Endophthalmitis [None]
  - Drug ineffective [None]

NARRATIVE: CASE EVENT DATE: 20140412
